FAERS Safety Report 8240909-4 (Version None)
Quarter: 2012Q1

REPORT INFORMATION
  Report Type: 
  Country: None (occurrence: None)
  Receive Date: 20120328
  Receipt Date: 20111208
  Transmission Date: 20120608
  Serious: No
  Sender: FDA-Public Use
  Company Number: US-JHP PHARMACEUTICALS, LLC-JHP201100629

PATIENT
  Sex: Female

DRUGS (1)
  1. DANTRIUM [Suspect]
     Indication: ACCIDENTAL EXPOSURE
     Dosage: UNK
     Route: 003
     Dates: start: 20111208, end: 20111208

REACTIONS (2)
  - ACCIDENTAL EXPOSURE [None]
  - NO ADVERSE EVENT [None]
